FAERS Safety Report 23766913 (Version 1)
Quarter: 2024Q2

REPORT INFORMATION
  Report Type: Report from Study
  Country: US (occurrence: US)
  Receive Date: 20240422
  Receipt Date: 20240422
  Transmission Date: 20240716
  Serious: Yes (Hospitalization, Other)
  Sender: FDA-Public Use
  Company Number: US-MTPC-MTDA2024-0007948

PATIENT
  Age: 79 Year
  Sex: Male

DRUGS (2)
  1. RADICAVA ORS [Suspect]
     Active Substance: EDARAVONE
     Indication: Amyotrophic lateral sclerosis
     Dosage: STANDARD DOSING
     Route: 065
     Dates: start: 20240405, end: 20240406
  2. RADICAVA ORS [Suspect]
     Active Substance: EDARAVONE
     Indication: Amyotrophic lateral sclerosis
     Dosage: STANDARD DOSING
     Route: 065
     Dates: start: 20240405, end: 20240406

REACTIONS (2)
  - Respiratory failure [Unknown]
  - Dyspnoea [Unknown]

NARRATIVE: CASE EVENT DATE: 20240405
